FAERS Safety Report 6039525-4 (Version None)
Quarter: 2009Q1

REPORT INFORMATION
  Report Type: 
  Country: None (occurrence: None)
  Receive Date: 20090116
  Receipt Date: 20090112
  Transmission Date: 20090719
  Serious: Yes (Hospitalization)
  Sender: FDA-Public Use
  Company Number: GB-RANBAXY-2009RR-20441

PATIENT
  Age: 53 Year
  Sex: Male

DRUGS (7)
  1. CITALOPRAM HYDROBROMIDE [Suspect]
     Indication: ANXIETY DISORDER
     Dosage: 20 MG, QD
     Route: 048
     Dates: start: 19990101, end: 20081213
  2. IBUPROFEN [Suspect]
     Indication: PAIN
     Dosage: 400 MG, TID
     Route: 048
     Dates: start: 19940101, end: 20081213
  3. ACETAMINOPHEN W/ CODEINE [Concomitant]
     Indication: PAIN
     Dosage: 2 DF, PRN
     Route: 048
  4. DIAZEPAM [Concomitant]
     Indication: ANXIETY
     Dosage: 5 MG, TID
     Route: 048
  5. LOTRIDERM [Concomitant]
     Route: 061
  6. PEPTAC [Concomitant]
     Indication: DYSPEPSIA
     Dosage: UNK
     Route: 048
  7. SENNA [Concomitant]
     Indication: CONSTIPATION
     Dosage: 2 DF, QD
     Route: 048

REACTIONS (1)
  - PERFORATED ULCER [None]
